FAERS Safety Report 8022030-3 (Version None)
Quarter: 2012Q1

REPORT INFORMATION
  Report Type: 
  Country: None (occurrence: None)
  Receive Date: 20120104
  Receipt Date: 20111228
  Transmission Date: 20120608
  Serious: No
  Sender: FDA-Public Use
  Company Number: US-BAYER-2011-124002

PATIENT
  Sex: Female

DRUGS (2)
  1. MIRENA [Suspect]
     Dosage: UNK
  2. ANTIBIOTICS [Concomitant]
     Dosage: UNK
     Dates: start: 20110101, end: 20110101

REACTIONS (1)
  - PREGNANCY WITH CONTRACEPTIVE DEVICE [None]
